FAERS Safety Report 4943902-X (Version None)
Quarter: 2006Q1

REPORT INFORMATION
  Report Type: 
  Country: None (occurrence: None)
  Receive Date: 20060310
  Receipt Date: 20060301
  Transmission Date: 20060701
  Serious: Yes (Other)
  Sender: FDA-Public Use
  Company Number: 2006031236

PATIENT
  Sex: Female

DRUGS (1)
  1. ACCUPRIL [Suspect]
     Indication: ILL-DEFINED DISORDER
     Dosage: 40 MG (40 MG, DAILY), ORAL
     Route: 048

REACTIONS (2)
  - COELIAC DISEASE [None]
  - MALAISE [None]
